FAERS Safety Report 4553142-4 (Version None)
Quarter: 2005Q1

REPORT INFORMATION
  Report Type: 
  Country: None (occurrence: None)
  Receive Date: 20050114
  Receipt Date: 20041123
  Transmission Date: 20050727
  Serious: Yes (Other)
  Sender: FDA-Public Use
  Company Number: US-GLAXOSMITHKLINE-A0534911A

PATIENT
  Age: 47 Year
  Sex: Male

DRUGS (4)
  1. PAXIL [Suspect]
     Indication: POST-TRAUMATIC STRESS DISORDER
     Route: 048
  2. OXYCONTIN [Concomitant]
     Indication: PAIN
     Dosage: 80MG TWICE PER DAY
     Route: 065
  3. LORTAB [Concomitant]
     Indication: PAIN
     Route: 065
  4. AVANDIA [Concomitant]
     Indication: DIABETES MELLITUS
     Route: 048

REACTIONS (15)
  - ABNORMAL BEHAVIOUR [None]
  - AGITATION [None]
  - AMNESIA [None]
  - DENTAL CARIES [None]
  - DEPRESSION [None]
  - DRY MOUTH [None]
  - FEAR [None]
  - JUDGEMENT IMPAIRED [None]
  - OVERDOSE [None]
  - PHYSICAL ASSAULT [None]
  - SELF MUTILATION [None]
  - SUICIDAL IDEATION [None]
  - TOOTH LOSS [None]
  - TREMOR [None]
  - WEIGHT DECREASED [None]
